FAERS Safety Report 4586480-X (Version None)
Quarter: 2005Q1

REPORT INFORMATION
  Report Type: 
  Country: None (occurrence: None)
  Receive Date: 20050218
  Receipt Date: 20041230
  Transmission Date: 20050727
  Serious: Yes (Other)
  Sender: FDA-Public Use
  Company Number: ES-ROCHE-390986

PATIENT
  Age: 42 Year
  Sex: Male
  Weight: 84 kg

DRUGS (1)
  1. FUZEON [Suspect]
     Indication: DRUG USE FOR UNKNOWN INDICATION
     Dosage: STRENGTH AND FORMULATION REPORTED AS: 90 MG/VIAL.
     Route: 058
     Dates: start: 20041223, end: 20041223

REACTIONS (4)
  - ASTHENIA [None]
  - CHILLS [None]
  - MIGRAINE [None]
  - PYREXIA [None]
